FAERS Safety Report 9807805 (Version 1)
Quarter: 2014Q1

REPORT INFORMATION
  Report Type: Spontaneous
  Country: US (occurrence: US)
  Receive Date: 20140110
  Receipt Date: 20140110
  Transmission Date: 20141002
  Serious: Yes (Hospitalization, Other)
  Sender: FDA-Public Use
  Company Number: US-ELI_LILLY_AND_COMPANY-US201401000783

PATIENT
  Age: 48 Year
  Sex: Female
  Weight: 61.22 kg

DRUGS (2)
  1. HUMALOG LISPRO [Suspect]
     Indication: PRODUCT USED FOR UNKNOWN INDICATION
     Dosage: UNK
     Route: 058
  2. LANTUS [Concomitant]

REACTIONS (6)
  - Diabetic ketoacidosis [Unknown]
  - Agitation [Unknown]
  - Renal disorder [Unknown]
  - Blood glucose increased [Unknown]
  - Pain [Unknown]
  - Accident [Unknown]
